FAERS Safety Report 25381022 (Version 1)
Quarter: 2025Q2

REPORT INFORMATION
  Report Type: Spontaneous
  Country: CN (occurrence: CN)
  Receive Date: 20250530
  Receipt Date: 20250530
  Transmission Date: 20250717
  Serious: Yes (Other)
  Sender: ELI LILLY AND COMPANY
  Company Number: CN-Merck Healthcare KGaA-2025025402

PATIENT
  Age: 73 Year
  Sex: Female
  Weight: 57 kg

DRUGS (9)
  1. ERBITUX [Suspect]
     Active Substance: CETUXIMAB
     Indication: Rectal cancer
     Dosage: 600 MG, UNK
     Route: 041
     Dates: start: 20250401, end: 20250417
  2. ERBITUX [Suspect]
     Active Substance: CETUXIMAB
     Route: 041
     Dates: start: 20250506, end: 20250506
  3. OXALIPLATIN [Suspect]
     Active Substance: OXALIPLATIN
     Indication: Rectal cancer
     Dosage: 120 MG, UNK
     Route: 041
     Dates: start: 20250401, end: 20250417
  4. OXALIPLATIN [Suspect]
     Active Substance: OXALIPLATIN
     Dosage: 120 MG, DAILY
     Route: 041
     Dates: start: 20250506, end: 20250506
  5. FLUOROURACIL [Suspect]
     Active Substance: FLUOROURACIL
     Indication: Rectal cancer
     Dosage: 4 G, UNK
     Route: 042
     Dates: start: 20250401, end: 20250417
  6. FLUOROURACIL [Suspect]
     Active Substance: FLUOROURACIL
     Dosage: .5 G, DAILY
     Route: 042
     Dates: start: 20250506, end: 20250506
  7. FLUOROURACIL [Suspect]
     Active Substance: FLUOROURACIL
     Dosage: 3.5 G, DAILY, PUMP INJECTION
     Route: 050
     Dates: start: 20250506, end: 20250506
  8. LEVOLEUCOVORIN CALCIUM [Concomitant]
     Active Substance: LEVOLEUCOVORIN CALCIUM
     Indication: Rectal cancer
     Dates: start: 20250401, end: 20250417
  9. LEVOLEUCOVORIN CALCIUM [Concomitant]
     Active Substance: LEVOLEUCOVORIN CALCIUM
     Dosage: 600 MG, UNK
     Dates: start: 20250506

REACTIONS (2)
  - Sinus bradycardia [Recovering/Resolving]
  - Off label use [Unknown]

NARRATIVE: CASE EVENT DATE: 20250506
